FAERS Safety Report 5168457-9 (Version None)
Quarter: 2006Q4

REPORT INFORMATION
  Report Type: 
  Country: None (occurrence: None)
  Receive Date: 20061208
  Receipt Date: 20061128
  Transmission Date: 20070319
  Serious: Yes (Other)
  Sender: FDA-Public Use
  Company Number: CA-ROCHE-472900

PATIENT
  Age: 67 Year
  Sex: Female
  Weight: 78 kg

DRUGS (22)
  1. TAMIFLU [Suspect]
     Indication: DRUG USE FOR UNKNOWN INDICATION
     Route: 065
  2. DIDROCAL [Concomitant]
     Route: 048
  3. DOCUSATE SODIUM [Concomitant]
     Route: 048
  4. FLUOXETINE [Concomitant]
     Route: 048
  5. LACTULOSE [Concomitant]
     Route: 048
  6. METOCLOPRAMIDE [Concomitant]
  7. NICOTINE [Concomitant]
     Dosage: DOSAGE FORM REPORTED AS TPD.
     Route: 061
  8. PHENYTOIN SODIUM CAP [Concomitant]
     Route: 048
  9. SPIRIVA [Concomitant]
     Route: 055
  10. VITAMIN D [Concomitant]
     Route: 048
  11. SODIUM PHOSPHATES [Concomitant]
     Route: 048
  12. SODIUM PHOSPHATES [Concomitant]
     Route: 054
  13. SALBUTAMOL [Concomitant]
     Route: 055
  14. HALOPERIDOL [Concomitant]
     Route: 058
  15. CLONIDINE [Concomitant]
     Route: 048
  16. ACETAMINOPHEN [Concomitant]
     Route: 048
  17. TRAZODONE HCL [Concomitant]
     Route: 048
  18. SENNA [Concomitant]
     Route: 048
  19. PANTOPRAZOLE SODIUM [Concomitant]
     Route: 048
  20. CENTRUM FORTE [Concomitant]
     Route: 048
  21. METHYLPHENIDATE HCL [Concomitant]
     Route: 048
  22. HYDROMORPH CONTIN [Concomitant]
     Dosage: FORMULATION REPORTED AS SRC.
     Route: 048

REACTIONS (1)
  - GRAND MAL CONVULSION [None]
